FAERS Safety Report 7005829-1 (Version None)
Quarter: 2010Q3

REPORT INFORMATION
  Report Type: 
  Country: None (occurrence: None)
  Receive Date: 20100921
  Receipt Date: 20100915
  Transmission Date: 20110219
  Serious: Yes (Hospitalization)
  Sender: FDA-Public Use
  Company Number: CO-ELI_LILLY_AND_COMPANY-CO201009001276

PATIENT
  Sex: Female

DRUGS (5)
  1. BYETTA [Suspect]
     Indication: TYPE 2 DIABETES MELLITUS
     Dosage: 5 UG, 2/D
     Route: 058
     Dates: start: 20070813, end: 20070901
  2. BYETTA [Suspect]
     Dosage: 10 UG, 2/D
     Dates: start: 20070901
  3. LANTUS [Concomitant]
     Indication: TYPE 2 DIABETES MELLITUS
  4. LOSARTAN POTASSIUM [Concomitant]
     Indication: HYPERTENSION
  5. LOVAZA [Concomitant]

REACTIONS (3)
  - CHRONIC OBSTRUCTIVE PULMONARY DISEASE [None]
  - INFLUENZA [None]
  - OFF LABEL USE [None]
